FAERS Safety Report 6891186-8 (Version None)
Quarter: 2010Q3

REPORT INFORMATION
  Report Type: 
  Country: None (occurrence: None)
  Receive Date: 20100731
  Receipt Date: 20090618
  Transmission Date: 20110219
  Serious: No
  Sender: FDA-Public Use
  Company Number: US-PFIZER INC-2009204726

PATIENT
  Sex: Female
  Weight: 97.959 kg

DRUGS (4)
  1. LIPITOR [Suspect]
     Indication: BLOOD CHOLESTEROL INCREASED
     Dosage: 40 MG, 1X/DAY
     Dates: start: 20080101
  2. ADVAIR DISKUS 100/50 [Concomitant]
     Dosage: UNK
  3. COMBIVENT [Concomitant]
     Dosage: UNK
  4. SALBUTAMOL SULFATE [Concomitant]
     Dosage: UNK

REACTIONS (2)
  - BLOOD CHOLESTEROL INCREASED [None]
  - WRONG TECHNIQUE IN DRUG USAGE PROCESS [None]
